FAERS Safety Report 4599345-4 (Version None)
Quarter: 2005Q1

REPORT INFORMATION
  Report Type: 
  Country: None (occurrence: None)
  Receive Date: 20050302
  Receipt Date: 20050302
  Transmission Date: 20050727
  Serious: Yes (Life-Threatening)
  Sender: FDA-Public Use
  Company Number: None

PATIENT
  Age: 83 Year
  Sex: Female
  Weight: 68.0396 kg

DRUGS (1)
  1. DYAZIDE [Suspect]
     Dosage: 37.5 - 25  EVERY DAY
     Dates: start: 19990101

REACTIONS (2)
  - HEADACHE [None]
  - VOMITING [None]
